FAERS Safety Report 13567603 (Version 4)
Quarter: 2017Q4

REPORT INFORMATION
  Report Type: Report from Study
  Country: JP (occurrence: JP)
  Receive Date: 20170522
  Receipt Date: 20171025
  Transmission Date: 20180320
  Serious: Yes (Other)
  Sender: FDA-Public Use
  Company Number: PHJP2017JP016722

PATIENT
  Age: 75 Year
  Sex: Female

DRUGS (7)
  1. ZYKADIA [Suspect]
     Active Substance: CERITINIB
     Indication: NON-SMALL CELL LUNG CANCER STAGE IV
     Dosage: 600 MG, QD
     Route: 048
     Dates: start: 20160913, end: 201609
  2. MIYA-BM [Concomitant]
     Active Substance: CLOSTRIDIUM BUTYRICUM SPORES STRAIN M-55
     Indication: PRODUCT USED FOR UNKNOWN INDICATION
     Route: 065
     Dates: start: 201609, end: 201610
  3. ALECENSA [Concomitant]
     Active Substance: ALECTINIB HYDROCHLORIDE
     Indication: NON-SMALL CELL LUNG CANCER
     Dosage: 600 MG, UNK
     Route: 048
  4. ZYKADIA [Suspect]
     Active Substance: CERITINIB
     Dosage: 150 MG, QD
     Route: 048
     Dates: start: 201609, end: 20161024
  5. ZYPREXA [Concomitant]
     Active Substance: OLANZAPINE
     Indication: PRODUCT USED FOR UNKNOWN INDICATION
     Dosage: 1.25 MG, UNK
     Route: 065
     Dates: start: 201609, end: 201610
  6. ZYKADIA [Suspect]
     Active Substance: CERITINIB
     Dosage: 450 MG, QD
     Route: 048
     Dates: start: 201609, end: 201609
  7. KYTRIL [Concomitant]
     Active Substance: GRANISETRON HYDROCHLORIDE
     Indication: PRODUCT USED FOR UNKNOWN INDICATION
     Dosage: 1 MG, UNK
     Route: 065
     Dates: start: 201609, end: 201609

REACTIONS (6)
  - General physical health deterioration [Unknown]
  - Malaise [Recovering/Resolving]
  - Dizziness [Recovering/Resolving]
  - Feeling hot [Recovering/Resolving]
  - Nausea [Recovering/Resolving]
  - Diarrhoea [Recovering/Resolving]

NARRATIVE: CASE EVENT DATE: 20160916
